FAERS Safety Report 20814917 (Version 2)
Quarter: 2023Q4

REPORT INFORMATION
  Report Type: Spontaneous
  Country: US (occurrence: US)
  Receive Date: 20220511
  Receipt Date: 20231115
  Transmission Date: 20240110
  Serious: No
  Sender: FDA-Public Use
  Company Number: US-PFIZER INC-202101119826

PATIENT
  Age: 81 Year
  Sex: Female
  Weight: 100.69 kg

DRUGS (3)
  1. LEVOTHYROXINE SODIUM [Suspect]
     Active Substance: LEVOTHYROXINE SODIUM
     Indication: Thyroid disorder
     Dosage: 125 MG, 1X/DAY (ONE EVERY DAY)
     Dates: start: 2009
  2. LEVOTHYROXINE SODIUM [Suspect]
     Active Substance: LEVOTHYROXINE SODIUM
     Indication: Breast cancer stage II
     Dosage: 100 MG
  3. LEVOTHYROXINE SODIUM [Suspect]
     Active Substance: LEVOTHYROXINE SODIUM
     Dosage: 112 MG

REACTIONS (3)
  - Weight increased [Unknown]
  - Metabolic disorder [Unknown]
  - Wrong strength [Unknown]
